FAERS Safety Report 5999534-8 (Version None)
Quarter: 2008Q4

REPORT INFORMATION
  Report Type: 
  Country: None (occurrence: None)
  Receive Date: 20081211
  Receipt Date: 20081211
  Transmission Date: 20090506
  Serious: No
  Sender: FDA-Public Use
  Company Number: None

PATIENT
  Sex: Female
  Weight: 83.9154 kg

DRUGS (1)
  1. AMITRIPTYLINE HCL [Suspect]
     Indication: CYSTITIS INTERSTITIAL
     Dosage: 10 MG. 1 X DAY BY MOUTH
     Route: 048
     Dates: start: 20081113

REACTIONS (4)
  - CHILLS [None]
  - COLD SWEAT [None]
  - NO REACTION ON PREVIOUS EXPOSURE TO DRUG [None]
  - SYNCOPE [None]
